FAERS Safety Report 5361078-4 (Version None)
Quarter: 2007Q2

REPORT INFORMATION
  Report Type: 
  Country: None (occurrence: None)
  Receive Date: 20070612
  Receipt Date: 20070606
  Transmission Date: 20071010
  Serious: Yes (Life-Threatening, Other)
  Sender: FDA-Public Use
  Company Number: 2007SP009196

PATIENT
  Age: 60 Year
  Sex: Male
  Weight: 62.5964 kg

DRUGS (2)
  1. PEG-INTRON [Suspect]
     Indication: HEPATITIS C
     Dosage: 96 MCG;QW;SC
     Route: 058
     Dates: start: 20061010, end: 20070421
  2. REBETOL [Suspect]
     Indication: HEPATITIS C
     Dosage: 1000 MG; PO
     Route: 048
     Dates: start: 20061010, end: 20070413

REACTIONS (2)
  - ANAEMIA [None]
  - PRIAPISM [None]
